FAERS Safety Report 10207931 (Version 1)
Quarter: 2014Q2

REPORT INFORMATION
  Report Type: Spontaneous
  Country: US (occurrence: US)
  Receive Date: 20140530
  Receipt Date: 20140530
  Transmission Date: 20141212
  Serious: No
  Sender: FDA-Public Use
  Company Number: US-GLAXOSMITHKLINE-A1065408A

PATIENT
  Age: 53 Year
  Sex: Female

DRUGS (4)
  1. VENTOLIN [Suspect]
     Indication: NASOPHARYNGITIS
     Route: 055
     Dates: start: 2013
  2. CELEXA [Concomitant]
  3. COZAAR [Concomitant]
  4. SYNTHROID [Concomitant]

REACTIONS (3)
  - Retching [Recovered/Resolved]
  - Foreign body [Recovered/Resolved]
  - Product quality issue [Unknown]
